FAERS Safety Report 4370311-7 (Version None)
Quarter: 2004Q2

REPORT INFORMATION
  Report Type: 
  Country: None (occurrence: None)
  Receive Date: 20040603
  Receipt Date: 20040309
  Transmission Date: 20050107
  Serious: No
  Sender: FDA-Public Use
  Company Number: US-BRISTOL-MYERS SQUIBB COMPANY-12528139

PATIENT
  Age: 48 Year
  Sex: Male
  Weight: 113 kg

DRUGS (9)
  1. ABILIFY [Suspect]
     Indication: BIPOLAR DISORDER
     Route: 048
  2. LEXAPRO [Concomitant]
  3. TOPROL-XL [Concomitant]
  4. PRINIVIL [Concomitant]
  5. LASIX [Concomitant]
  6. MINOXIDIL [Concomitant]
  7. CARDURA [Concomitant]
  8. DEPAKOTE [Concomitant]
  9. ASPIRIN [Concomitant]

REACTIONS (1)
  - DIARRHOEA [None]
